FAERS Safety Report 7415630-2 (Version None)
Quarter: 2011Q2

REPORT INFORMATION
  Report Type: 
  Country: None (occurrence: None)
  Receive Date: 20110414
  Receipt Date: 20110331
  Transmission Date: 20111010
  Serious: Yes (Hospitalization)
  Sender: FDA-Public Use
  Company Number: US-JNJFOC-20110400879

PATIENT
  Sex: Female
  Weight: 58.97 kg

DRUGS (5)
  1. REMICADE [Suspect]
     Indication: RHEUMATOID ARTHRITIS
     Route: 042
  2. REMICADE [Suspect]
     Route: 042
  3. METHOTREXATE [Concomitant]
     Indication: RHEUMATOID ARTHRITIS
     Dosage: 2.5 MG TABLET, 8 TABLETS WEEKLY
     Route: 048
  4. PLAQUENIL [Concomitant]
     Indication: RHEUMATOID ARTHRITIS
     Route: 048
  5. PAXIL [Concomitant]
     Indication: ANXIETY
     Route: 048

REACTIONS (13)
  - BACK PAIN [None]
  - VITAMIN D DEFICIENCY [None]
  - MYOCARDIAL INFARCTION [None]
  - DYSPNOEA [None]
  - BLOOD CHOLESTEROL INCREASED [None]
  - TOOTH DISORDER [None]
  - HERPES VIRUS INFECTION [None]
  - ABASIA [None]
  - GASTRIC DISORDER [None]
  - INFLUENZA LIKE ILLNESS [None]
  - PAIN [None]
  - THROAT TIGHTNESS [None]
  - INFUSION RELATED REACTION [None]
